FAERS Safety Report 15566325 (Version 1)
Quarter: 2018Q4

REPORT INFORMATION
  Report Type: Spontaneous
  Country: US (occurrence: US)
  Receive Date: 20181030
  Receipt Date: 20181030
  Transmission Date: 20190205
  Serious: Yes (Other)
  Sender: FDA-Public Use
  Company Number: US-PFIZER INC-2018443413

PATIENT
  Age: 28 Year
  Sex: Male

DRUGS (1)
  1. TIGECYCLINE. [Suspect]
     Active Substance: TIGECYCLINE
     Dosage: UNK

REACTIONS (2)
  - Haemolytic anaemia [Unknown]
  - Drug hypersensitivity [Unknown]
